FAERS Safety Report 4941255-4 (Version None)
Quarter: 2006Q1

REPORT INFORMATION
  Report Type: 
  Country: None (occurrence: None)
  Receive Date: 20060313
  Receipt Date: 20050517
  Transmission Date: 20060701
  Serious: Yes (Hospitalization, Disabling)
  Sender: FDA-Public Use
  Company Number: US-MERCK-0505USA02094

PATIENT
  Age: 51 Year
  Sex: Female
  Weight: 82 kg

DRUGS (1)
  1. VIOXX [Suspect]
     Indication: OSTEOARTHRITIS
     Route: 048
     Dates: start: 20010101, end: 20030101

REACTIONS (12)
  - ANXIETY [None]
  - AORTIC VALVE INCOMPETENCE [None]
  - CATHETER RELATED COMPLICATION [None]
  - CEREBROVASCULAR ACCIDENT [None]
  - DYSPHAGIA [None]
  - EMBOLISM [None]
  - GOITRE [None]
  - HEADACHE [None]
  - HOT FLUSH [None]
  - INJURY [None]
  - NECK MASS [None]
  - UTERINE DISORDER [None]
